FAERS Safety Report 19095912 (Version 1)
Quarter: 2021Q2

REPORT INFORMATION
  Report Type: Other
  Country: CA (occurrence: CA)
  Receive Date: 20210406
  Receipt Date: 20210406
  Transmission Date: 20210717
  Serious: Yes (Other)
  Sender: FDA-Public Use
  Company Number: CA-APOTEX-2021AP007768

PATIENT
  Sex: Male

DRUGS (3)
  1. LEFLUNOMIDE. [Suspect]
     Active Substance: LEFLUNOMIDE
     Indication: PRODUCT USED FOR UNKNOWN INDICATION
     Dosage: UNK
     Route: 065
  2. METHOTREXATE. [Suspect]
     Active Substance: METHOTREXATE
     Indication: PRODUCT USED FOR UNKNOWN INDICATION
     Dosage: UNK
     Route: 065
  3. SULFASALAZINE. [Concomitant]
     Active Substance: SULFASALAZINE
     Indication: PRODUCT USED FOR UNKNOWN INDICATION
     Dosage: UNK
     Route: 065

REACTIONS (13)
  - Fatigue [Unknown]
  - Joint swelling [Unknown]
  - Tuberculosis [Unknown]
  - Drug ineffective [Unknown]
  - Arthralgia [Unknown]
  - Discomfort [Unknown]
  - Back pain [Unknown]
  - Pain [Unknown]
  - Dysstasia [Unknown]
  - General physical health deterioration [Unknown]
  - Neck pain [Unknown]
  - Musculoskeletal stiffness [Unknown]
  - Gait disturbance [Unknown]
